FAERS Safety Report 8794977 (Version 2)
Quarter: 2015Q1

REPORT INFORMATION
  Report Type: Report from Study
  Country: US (occurrence: US)
  Receive Date: 20120918
  Receipt Date: 20150327
  Transmission Date: 20150721
  Serious: Yes (Death)
  Sender: FDA-Public Use
  Company Number: US-ROCHE-1125718

PATIENT
  Age: 71 Year
  Sex: Female
  Weight: 70 kg

DRUGS (17)
  1. AMBIEN [Concomitant]
     Active Substance: ZOLPIDEM TARTRATE
     Route: 065
  2. ZOFRAN [Concomitant]
     Active Substance: ONDANSETRON HYDROCHLORIDE
  3. LEVAQUIN [Concomitant]
     Active Substance: LEVOFLOXACIN
     Route: 065
  4. COMBIVENT [Concomitant]
     Active Substance: ALBUTEROL SULFATE\IPRATROPIUM BROMIDE
     Route: 065
  5. KEFLEX [Concomitant]
     Active Substance: CEPHALEXIN
     Route: 065
  6. TARCEVA [Suspect]
     Active Substance: ERLOTINIB HYDROCHLORIDE
     Indication: MALIGNANT RESPIRATORY TRACT NEOPLASM
     Route: 065
     Dates: start: 20050401
  7. LASIX [Concomitant]
     Active Substance: FUROSEMIDE
     Route: 065
  8. LORTAB (UNITED STATES) [Concomitant]
     Route: 065
  9. COUMADIN [Concomitant]
     Active Substance: WARFARIN SODIUM
     Route: 065
  10. ARANESP [Concomitant]
     Active Substance: DARBEPOETIN ALFA
     Route: 065
  11. IMODIUM [Concomitant]
     Active Substance: LOPERAMIDE HYDROCHLORIDE
     Route: 065
  12. MYCOLOG [Concomitant]
     Active Substance: GRAMICIDIN\NEOMYCIN SULFATE\NYSTATIN\TRIAMCINOLONE ACETONIDE
     Route: 065
  13. OXANDRIN [Concomitant]
     Active Substance: OXANDROLONE
     Route: 065
  14. AVASTIN [Suspect]
     Active Substance: BEVACIZUMAB
     Indication: MALIGNANT RESPIRATORY TRACT NEOPLASM
     Route: 065
     Dates: start: 20050406
  15. AVASTIN [Suspect]
     Active Substance: BEVACIZUMAB
     Indication: LUNG NEOPLASM MALIGNANT
  16. ZOMETA [Concomitant]
     Active Substance: ZOLEDRONIC ACID
     Route: 065
  17. QUESTRAN [Concomitant]
     Active Substance: CHOLESTYRAMINE
     Route: 065

REACTIONS (21)
  - Insomnia [Unknown]
  - Chronic obstructive pulmonary disease [Unknown]
  - Weight decreased [Unknown]
  - Hyperkalaemia [Unknown]
  - Arteriosclerosis [Unknown]
  - Death [Fatal]
  - Metastasis [Unknown]
  - Cellulitis [Unknown]
  - Diarrhoea [Unknown]
  - Skin irritation [Unknown]
  - Skin exfoliation [Unknown]
  - Oedema [Recovering/Resolving]
  - Epistaxis [Unknown]
  - Dyspnoea [Unknown]
  - Alopecia [Unknown]
  - Coagulopathy [Unknown]
  - Rash [Unknown]
  - Pain [Unknown]
  - Chest discomfort [Unknown]
  - Anaemia [Unknown]
  - Myelopathy [Unknown]

NARRATIVE: CASE EVENT DATE: 20051119
